FAERS Safety Report 23603444 (Version 1)
Quarter: 2024Q1

REPORT INFORMATION
  Report Type: Spontaneous
  Country: PT (occurrence: PT)
  Receive Date: 20240307
  Receipt Date: 20240307
  Transmission Date: 20240410
  Serious: Yes (Other)
  Sender: FDA-Public Use
  Company Number: None

PATIENT
  Age: 19 Year
  Sex: Female

DRUGS (1)
  1. CLOTRIMAZOLE [Suspect]
     Active Substance: CLOTRIMAZOLE
     Indication: Vaginal disorder
     Dosage: CLOTRIMAZOL, 1 APPLICATION INTERNALLY AND EXTERNALLY, AT NIGHT
     Route: 067
     Dates: start: 20231231, end: 20240101

REACTIONS (1)
  - Vaginal haemorrhage [Recovering/Resolving]
